FAERS Safety Report 5242287-1 (Version None)
Quarter: 2007Q1

REPORT INFORMATION
  Report Type: 
  Country: None (occurrence: None)
  Receive Date: 20070216
  Receipt Date: 20070216
  Transmission Date: 20070707
  Serious: Yes (Hospitalization, Other)
  Sender: FDA-Public Use
  Company Number: None

PATIENT
  Sex: Male
  Weight: 80.7403 kg

DRUGS (11)
  1. GALLIUM NITRATE 25MG/ML (GANITE) [Suspect]
     Indication: HYPERCALCAEMIA
     Dosage: 460 MG (250MG/M2) DAILY X 5 DAYS IV
     Route: 042
     Dates: start: 20070103, end: 20070108
  2. GALLIUM NITRATE 25MG/ML (GANITE) [Suspect]
     Indication: LYMPHOMA
     Dosage: 460 MG (250MG/M2) DAILY X 5 DAYS IV
     Route: 042
     Dates: start: 20070103, end: 20070108
  3. MEGACE [Concomitant]
  4. LOVENOX [Concomitant]
  5. VIT D [Concomitant]
  6. CALCIUM [Concomitant]
  7. MAGNESIUM [Concomitant]
  8. AVODART [Concomitant]
  9. PROCRIT [Concomitant]
  10. SYNTHROID [Concomitant]
  11. POTASSIUM CHLORIDE [Concomitant]

REACTIONS (11)
  - BLINDNESS CORTICAL [None]
  - BLOOD CALCIUM DECREASED [None]
  - BLOOD CREATININE INCREASED [None]
  - BLOOD MAGNESIUM DECREASED [None]
  - DRUG TOXICITY [None]
  - ELECTROLYTE IMBALANCE [None]
  - GAIT DISTURBANCE [None]
  - HALLUCINATION, VISUAL [None]
  - MEDICAL DEVICE COMPLICATION [None]
  - MENTAL STATUS CHANGES [None]
  - URINARY TRACT INFECTION [None]
